FAERS Safety Report 15894251 (Version 2)
Quarter: 2019Q1

REPORT INFORMATION
  Report Type: Spontaneous
  Country: FR (occurrence: FR)
  Receive Date: 20190131
  Receipt Date: 20190208
  Transmission Date: 20190417
  Serious: Yes (Other)
  Sender: FDA-Public Use
  Company Number: FR-ROCHE-2254096

PATIENT
  Age: 19 Year
  Sex: Female

DRUGS (7)
  1. PREDNISONE. [Suspect]
     Active Substance: PREDNISONE
     Indication: PRODUCT USED FOR UNKNOWN INDICATION
     Route: 065
  2. METHYLPREDNISOLONE. [Suspect]
     Active Substance: METHYLPREDNISOLONE
     Indication: EPISCLERITIS
     Route: 065
  3. HYDROXYCHLOROQUINE [Concomitant]
     Active Substance: HYDROXYCHLOROQUINE
     Indication: SYSTEMIC LUPUS ERYTHEMATOSUS
     Route: 065
  4. RITUXIMAB. [Suspect]
     Active Substance: RITUXIMAB
     Indication: URTICARIAL VASCULITIS
     Route: 065
  5. COLCHICINE. [Suspect]
     Active Substance: COLCHICINE
     Indication: SYSTEMIC LUPUS ERYTHEMATOSUS
     Route: 065
  6. PREDNISONE. [Suspect]
     Active Substance: PREDNISONE
     Route: 065
  7. PREDNISONE. [Suspect]
     Active Substance: PREDNISONE
     Route: 065

REACTIONS (6)
  - Urticarial vasculitis [Unknown]
  - Drug intolerance [Unknown]
  - Herpes zoster [Unknown]
  - Intentional product use issue [Unknown]
  - Episcleritis [Recovered/Resolved]
  - Condition aggravated [Recovered/Resolved]
